FAERS Safety Report 15762105 (Version 4)
Quarter: 2019Q1

REPORT INFORMATION
  Report Type: Spontaneous
  Country: US (occurrence: US)
  Receive Date: 20181226
  Receipt Date: 20190328
  Transmission Date: 20190417
  Serious: Yes (Other)
  Sender: FDA-Public Use
  Company Number: US-PFIZER INC-2018530998

PATIENT
  Age: 31 Year
  Sex: Female

DRUGS (2)
  1. IBRANCE [Suspect]
     Active Substance: PALBOCICLIB
     Dosage: 100 MG, CYCLIC (TAKE 1 CAPSULE BY MOUTH ONCE DAILY FOR 21 DAYS, THEN 7 DAYS OFF)
     Route: 048
  2. IBRANCE [Suspect]
     Active Substance: PALBOCICLIB
     Dosage: 125 MG, CYCLIC [Q [EVERY] DAY X21, 7 DAYS OFF]

REACTIONS (15)
  - Decreased appetite [Unknown]
  - Viral infection [Unknown]
  - Hot flush [Not Recovered/Not Resolved]
  - Hypersomnia [Unknown]
  - Condition aggravated [Unknown]
  - Hypoaesthesia [Unknown]
  - Nausea [Unknown]
  - Condition aggravated [Not Recovered/Not Resolved]
  - Abdominal discomfort [Unknown]
  - Panic attack [Unknown]
  - Haematemesis [Unknown]
  - Feeling cold [Unknown]
  - Chest discomfort [Unknown]
  - Asthenia [Unknown]
  - Vomiting [Unknown]

NARRATIVE: CASE EVENT DATE: 20190115
